FAERS Safety Report 8307214-9 (Version None)
Quarter: 2012Q2

REPORT INFORMATION
  Report Type: 
  Country: None (occurrence: None)
  Receive Date: 20120424
  Receipt Date: 20120418
  Transmission Date: 20120825
  Serious: Yes (Other)
  Sender: FDA-Public Use
  Company Number: US-BAYER-2012-037750

PATIENT
  Age: 55 Year
  Sex: Female

DRUGS (1)
  1. MIRENA [Suspect]
     Indication: MENORRHAGIA
     Dosage: UNK
     Dates: start: 20120329, end: 20120403

REACTIONS (3)
  - GENITAL HAEMORRHAGE [None]
  - DEVICE EXPULSION [None]
  - ABDOMINAL PAIN LOWER [None]
